FAERS Safety Report 8048278-X (Version None)
Quarter: 2012Q1

REPORT INFORMATION
  Report Type: 
  Country: None (occurrence: None)
  Receive Date: 20120110
  Receipt Date: 20120103
  Transmission Date: 20120608
  Serious: Yes (Death)
  Sender: FDA-Public Use
  Company Number: DSA_48722_2012

PATIENT
  Sex: Male

DRUGS (7)
  1. ADVAIR HFA [Concomitant]
  2. ACETAMINOPHEN [Concomitant]
  3. VENTOLIN [Concomitant]
  4. XENAZINE [Suspect]
     Indication: HUNTINGTON'S DISEASE
     Dosage: (75 MG TID ORAL)
     Route: 048
     Dates: start: 20090501, end: 20111201
  5. ALBUTEROL [Concomitant]
  6. FLONASE [Concomitant]
  7. SENNA-MINT WAF [Concomitant]

REACTIONS (1)
  - DEATH [None]
